FAERS Safety Report 9027345 (Version 2)
Quarter: 2013Q1

REPORT INFORMATION
  Report Type: Spontaneous
  Country: DE (occurrence: DE)
  Receive Date: 20130123
  Receipt Date: 20130131
  Transmission Date: 20140127
  Serious: Yes (Other)
  Sender: FDA-Public Use
  Company Number: DE-BRISTOL-MYERS SQUIBB COMPANY-17284712

PATIENT
  Age: 90 Year
  Sex: Male

DRUGS (1)
  1. LITALIR [Suspect]

REACTIONS (2)
  - Hepatitis B [Unknown]
  - Thrombosis [Unknown]
